FAERS Safety Report 8118243-2 (Version None)
Quarter: 2012Q1

REPORT INFORMATION
  Report Type: 
  Country: None (occurrence: None)
  Receive Date: 20120207
  Receipt Date: 20120130
  Transmission Date: 20120608
  Serious: Yes (Other)
  Sender: FDA-Public Use
  Company Number: BR-BAYER-2011-113123

PATIENT
  Age: 42 Year
  Sex: Female
  Weight: 64 kg

DRUGS (3)
  1. ANTIBIOTICS [Concomitant]
     Indication: BREAST OPERATION
  2. ANTI-INFLAMMATORY [Suspect]
     Indication: BREAST OPERATION
  3. MIRENA [Suspect]
     Indication: CONTRACEPTION
     Dosage: 20 MCG/24HR, CONT
     Route: 015
     Dates: start: 20070401

REACTIONS (5)
  - VAGINAL HAEMORRHAGE [None]
  - HEPATIC NEOPLASM [None]
  - FOCAL NODULAR HYPERPLASIA [None]
  - GAMMA-GLUTAMYLTRANSFERASE INCREASED [None]
  - AMENORRHOEA [None]
